FAERS Safety Report 4474522-1 (Version None)
Quarter: 2004Q4

REPORT INFORMATION
  Report Type: 
  Country: None (occurrence: None)
  Receive Date: 20041008
  Receipt Date: 20040920
  Transmission Date: 20050328
  Serious: Yes (Hospitalization, Congenital Anomaly)
  Sender: FDA-Public Use
  Company Number: US_0405102717

PATIENT

DRUGS (1)
  1. PROZAC [Suspect]

REACTIONS (4)
  - CONGENITAL ABSENCE OF BILE DUCTS [None]
  - CONGENITAL HEPATOBILIARY ANOMALY [None]
  - DRUG EXPOSURE DURING PREGNANCY [None]
  - LIVER TRANSPLANT [None]
